FAERS Safety Report 7386311-9 (Version None)
Quarter: 2011Q1

REPORT INFORMATION
  Report Type: 
  Country: None (occurrence: None)
  Receive Date: 20110331
  Receipt Date: 20110317
  Transmission Date: 20110831
  Serious: Yes (Other)
  Sender: FDA-Public Use
  Company Number: PHHY2011CA22181

PATIENT

DRUGS (1)
  1. ALISKIREN [Suspect]
     Indication: HYPERTENSION
     Dosage: 300 MG, UNK
     Route: 048
     Dates: start: 20091007, end: 20110203

REACTIONS (1)
  - BLOOD ALBUMIN INCREASED [None]
